FAERS Safety Report 8239790-9 (Version None)
Quarter: 2012Q1

REPORT INFORMATION
  Report Type: 
  Country: None (occurrence: None)
  Receive Date: 20120327
  Receipt Date: 20120327
  Transmission Date: 20120608
  Serious: Yes (Other)
  Sender: FDA-Public Use
  Company Number: None

PATIENT
  Age: 70 Year
  Sex: Female
  Weight: 64.5 kg

DRUGS (1)
  1. TOBRADEX [Suspect]
     Indication: BLEPHARITIS
     Dosage: SPECK 1X PER DAY IN EVENING TOPICAL, EDGE OF EYE LID  JAN 20-JAN 23, REPEATED ONCE FEB 15
     Route: 061

REACTIONS (1)
  - HYPERSENSITIVITY [None]
